FAERS Safety Report 4844541-1 (Version None)
Quarter: 2005Q4

REPORT INFORMATION
  Report Type: 
  Country: None (occurrence: None)
  Receive Date: 20051130
  Receipt Date: 20051130
  Transmission Date: 20060501
  Serious: Yes (Life-Threatening, Hospitalization)
  Sender: FDA-Public Use
  Company Number: None

PATIENT
  Age: 49 Year
  Sex: Female
  Weight: 89.3586 kg

DRUGS (8)
  1. TRASTUZUMAB [Suspect]
     Indication: BREAST CANCER METASTATIC
     Dosage: 191 MG QWK IV
     Route: 042
     Dates: start: 20050510, end: 20050629
  2. BEVACIZUMAB [Suspect]
     Indication: BREAST CANCER METASTATIC
     Dosage: 955 MG Q2WK IV
     Route: 042
     Dates: start: 20050518, end: 20050629
  3. NIFEDIPINE [Concomitant]
  4. M.V.I. [Concomitant]
  5. GREEN FOOD [Concomitant]
  6. ATIVAN [Concomitant]
  7. ORIGINS (TOP) [Concomitant]
  8. PAXIL [Concomitant]

REACTIONS (17)
  - ASTHENIA [None]
  - CARDIAC FAILURE CONGESTIVE [None]
  - CARDIOGENIC SHOCK [None]
  - CARDIOMYOPATHY [None]
  - DILATATION VENTRICULAR [None]
  - DYSPHONIA [None]
  - EJECTION FRACTION DECREASED [None]
  - FATIGUE [None]
  - HYPOTENSION [None]
  - HYPOXIA [None]
  - LOWER RESPIRATORY TRACT INFLAMMATION [None]
  - LUNG INFILTRATION [None]
  - MULTI-ORGAN FAILURE [None]
  - PLEURAL EFFUSION [None]
  - RENAL FAILURE ACUTE [None]
  - VENOUS THROMBOSIS LIMB [None]
  - VENTRICULAR DYSFUNCTION [None]
